FAERS Safety Report 19665618 (Version 1)
Quarter: 2021Q3

REPORT INFORMATION
  Report Type: Spontaneous
  Country: US (occurrence: US)
  Receive Date: 20210805
  Receipt Date: 20210805
  Transmission Date: 20211014
  Serious: Yes (Hospitalization)
  Sender: FDA-Public Use
  Company Number: None

PATIENT
  Age: 61 Year
  Sex: Male

DRUGS (9)
  1. METHOTREXATE. [Concomitant]
     Active Substance: METHOTREXATE
  2. FISH OIL [Concomitant]
     Active Substance: FISH OIL
  3. ELIQUIS [Concomitant]
     Active Substance: APIXABAN
  4. FOLIC ACID. [Concomitant]
     Active Substance: FOLIC ACID
  5. METOPROLOL. [Concomitant]
     Active Substance: METOPROLOL
  6. ENBREL [Suspect]
     Active Substance: ETANERCEPT
     Indication: RHEUMATOID ARTHRITIS
     Dosage: ?          OTHER FREQUENCY:WEEKLY;?
     Route: 058
     Dates: start: 20210225
  7. NIACIN. [Concomitant]
     Active Substance: NIACIN
  8. ASPIRIN. [Concomitant]
     Active Substance: ASPIRIN
  9. TYLENOL 8HR [Concomitant]
     Active Substance: ACETAMINOPHEN

REACTIONS (1)
  - Therapy interrupted [None]

NARRATIVE: CASE EVENT DATE: 20210724
